FAERS Safety Report 14472543 (Version 1)
Quarter: 2018Q1

REPORT INFORMATION
  Report Type: Spontaneous
  Country: MY (occurrence: MY)
  Receive Date: 20180201
  Receipt Date: 20180201
  Transmission Date: 20180509
  Serious: Yes (Other)
  Sender: FDA-Public Use
  Company Number: PHHY2018MY011458

PATIENT
  Age: 33 Year
  Sex: Female

DRUGS (1)
  1. ETANERCEPT [Suspect]
     Active Substance: ETANERCEPT
     Indication: RHEUMATOID ARTHRITIS
     Dosage: UNK (TOTAL: 33 DOSES)
     Route: 058
     Dates: start: 2015

REACTIONS (3)
  - Pyrexia [Recovered/Resolved]
  - Organising pneumonia [Recovered/Resolved]
  - Cough [Recovered/Resolved]
